FAERS Safety Report 7958972-4 (Version None)
Quarter: 2011Q4

REPORT INFORMATION
  Report Type: 
  Country: None (occurrence: None)
  Receive Date: 20111206
  Receipt Date: 20111125
  Transmission Date: 20120403
  Serious: Yes (Other)
  Sender: FDA-Public Use
  Company Number: FR-SANOFI-AVENTIS-2011SA077728

PATIENT
  Age: 63 Year
  Sex: Male

DRUGS (4)
  1. AMLODIPINE [Concomitant]
     Route: 048
     Dates: start: 20100101
  2. PERINDOPRIL ERBUMINE [Concomitant]
     Route: 048
     Dates: start: 20100101
  3. LANTUS [Suspect]
     Route: 058
  4. HUMALOG [Concomitant]
     Route: 065

REACTIONS (1)
  - BLOOD CREATINE PHOSPHOKINASE INCREASED [None]
